FAERS Safety Report 15325629 (Version 1)
Quarter: 2018Q3

REPORT INFORMATION
  Report Type: Spontaneous
  Country: GB (occurrence: GB)
  Receive Date: 20180828
  Receipt Date: 20180828
  Transmission Date: 20181010
  Serious: Yes (Other)
  Sender: FDA-Public Use
  Company Number: PHHY2018GB082160

PATIENT
  Age: 14 Year
  Sex: Female
  Weight: 51.9 kg

DRUGS (1)
  1. COCODAMOL [Suspect]
     Active Substance: ACETAMINOPHEN\CODEINE PHOSPHATE
     Indication: HEAD INJURY
     Dosage: 2 DF, UNK
     Route: 048

REACTIONS (1)
  - Dizziness [Recovering/Resolving]
